FAERS Safety Report 7328513-3 (Version None)
Quarter: 2011Q1

REPORT INFORMATION
  Report Type: 
  Country: None (occurrence: None)
  Receive Date: 20110224
  Receipt Date: 20110224
  Transmission Date: 20110831
  Serious: Yes (Other)
  Sender: FDA-Public Use
  Company Number: None

PATIENT

DRUGS (9)
  1. INDERAL [Concomitant]
  2. OMEPRAZOLE [Concomitant]
  3. ASPIRIN [Concomitant]
  4. PILL FOR PROSTATE (UNSURE OF NAME) [Concomitant]
  5. HIGH BP MEDICATION (UNSRE OF NAME) [Concomitant]
  6. NAPROXEN [Concomitant]
  7. ZENIA [Concomitant]
  8. PLAVIX [Suspect]
     Dosage: 1 TABLET PER DAY
     Dates: start: 20110104, end: 20110221
  9. MOTRIN [Concomitant]

REACTIONS (12)
  - PYREXIA [None]
  - RHINORRHOEA [None]
  - MALAISE [None]
  - NAUSEA [None]
  - PRODUCT ODOUR ABNORMAL [None]
  - NASAL ULCER [None]
  - SKIN DISORDER [None]
  - ABDOMINAL DISCOMFORT [None]
  - RESPIRATORY DISORDER [None]
  - PRODUCT TASTE ABNORMAL [None]
  - DIARRHOEA [None]
  - PRODUCT QUALITY ISSUE [None]
